FAERS Safety Report 9560118 (Version 1)
Quarter: 2013Q3

REPORT INFORMATION
  Report Type: Spontaneous
  Country: US (occurrence: US)
  Receive Date: 20130927
  Receipt Date: 20130927
  Transmission Date: 20140515
  Serious: No
  Sender: FDA-Public Use
  Company Number: US-009507513-1309USA006500

PATIENT
  Sex: 0
  Weight: 63.49 kg

DRUGS (1)
  1. NUVARING [Suspect]
     Indication: CONTRACEPTION
     Dosage: UNKNOWN
     Route: 067

REACTIONS (1)
  - Inappropriate schedule of drug administration [Unknown]
